FAERS Safety Report 25010187 (Version 1)
Quarter: 2025Q1

REPORT INFORMATION
  Report Type: Spontaneous
  Country: CN (occurrence: CN)
  Receive Date: 20250225
  Receipt Date: 20250225
  Transmission Date: 20250409
  Serious: Yes (Hospitalization, Other)
  Sender: PFIZER
  Company Number: CN-PFIZER INC-PV202500021796

PATIENT
  Age: 2 Year
  Sex: Male
  Weight: 9.3 kg

DRUGS (3)
  1. CYTARABINE [Suspect]
     Active Substance: CYTARABINE
     Indication: Acute lymphocytic leukaemia
     Dosage: 23.5 MG, 2X/DAY
     Route: 041
     Dates: start: 20250127, end: 20250202
  2. MERCAPTOPURINE [Concomitant]
     Active Substance: MERCAPTOPURINE
     Indication: Acute lymphocytic leukaemia
     Route: 048
     Dates: start: 20250127, end: 20250202
  3. CYCLOPHOSPHAMIDE ANHYDROUS [Concomitant]
     Active Substance: CYCLOPHOSPHAMIDE ANHYDROUS
     Indication: Acute lymphocytic leukaemia
     Dosage: 0.47 G, 1X/DAY
     Route: 041
     Dates: start: 20250127, end: 20250127

REACTIONS (5)
  - Agranulocytosis [Recovering/Resolving]
  - Pyrexia [Recovering/Resolving]
  - Platelet count decreased [Unknown]
  - C-reactive protein increased [Recovering/Resolving]
  - Interleukin level increased [Unknown]

NARRATIVE: CASE EVENT DATE: 20250208
